FAERS Safety Report 23639954 (Version 1)
Quarter: 2024Q1

REPORT INFORMATION
  Report Type: Report from Study
  Country: US (occurrence: US)
  Receive Date: 20240316
  Receipt Date: 20240316
  Transmission Date: 20240409
  Serious: Yes (Other)
  Sender: FDA-Public Use
  Company Number: US-002147023-NVSC2024US031599

PATIENT
  Sex: Male

DRUGS (2)
  1. KESIMPTA [Suspect]
     Active Substance: OFATUMUMAB
     Indication: Relapsing multiple sclerosis
     Dosage: 20MG/0.4ML QW
     Route: 058
  2. KESIMPTA [Suspect]
     Active Substance: OFATUMUMAB
     Dosage: UNK, QW
     Route: 058

REACTIONS (18)
  - Multiple fractures [Unknown]
  - Loss of consciousness [Unknown]
  - Influenza like illness [Unknown]
  - Poor quality sleep [Unknown]
  - Muscle tightness [Unknown]
  - Headache [Unknown]
  - Asthenia [Unknown]
  - Gait disturbance [Unknown]
  - Fall [Unknown]
  - Body temperature increased [Unknown]
  - Nausea [Unknown]
  - Fatigue [Unknown]
  - Injection site pain [Unknown]
  - Somnolence [Unknown]
  - Brain fog [Unknown]
  - Pain [Unknown]
  - Anxiety [Unknown]
  - Nasopharyngitis [Unknown]
